FAERS Safety Report 18978236 (Version 1)
Quarter: 2021Q1

REPORT INFORMATION
  Report Type: Spontaneous
  Country: US (occurrence: US)
  Receive Date: 20210307
  Receipt Date: 20210307
  Transmission Date: 20210420
  Serious: No
  Sender: FDA-Public Use
  Company Number: US-NEUROCRINE BIOSCIENCES INC.-2021NBI00933

PATIENT
  Age: 64 Year
  Sex: Male
  Weight: 59.02 kg

DRUGS (10)
  1. LANSOPRAZOLE. [Concomitant]
     Active Substance: LANSOPRAZOLE
  2. INGREZZA [Suspect]
     Active Substance: VALBENAZINE
     Route: 048
     Dates: end: 2021
  3. TEGRETOL [Concomitant]
     Active Substance: CARBAMAZEPINE
  4. ZYRTEC [Concomitant]
     Active Substance: CETIRIZINE HYDROCHLORIDE
  5. WARFARIN [Concomitant]
     Active Substance: WARFARIN
  6. MULTIVITAMIN [Concomitant]
     Active Substance: VITAMINS
  7. INGREZZA [Suspect]
     Active Substance: VALBENAZINE
     Indication: TARDIVE DYSKINESIA
     Route: 048
     Dates: start: 20190204
  8. HYDROXYCHLOROQUINE [Concomitant]
     Active Substance: HYDROXYCHLOROQUINE
  9. TOPROL XL [Concomitant]
     Active Substance: METOPROLOL SUCCINATE
  10. SIMVASTATIN. [Concomitant]
     Active Substance: SIMVASTATIN

REACTIONS (3)
  - Somnolence [Unknown]
  - Therapeutic product effect incomplete [Unknown]
  - Tardive dyskinesia [Unknown]
